FAERS Safety Report 9927396 (Version 1)
Quarter: 2014Q1

REPORT INFORMATION
  Report Type: Spontaneous
  Country: ES (occurrence: ES)
  Receive Date: 20140226
  Receipt Date: 20140226
  Transmission Date: 20141002
  Serious: Yes (Other)
  Sender: FDA-Public Use
  Company Number: ES-BRISTOL-MYERS SQUIBB COMPANY-20329843

PATIENT
  Age: 35 Year
  Sex: Female

DRUGS (6)
  1. ABILIFY [Suspect]
     Indication: AFFECTIVE DISORDER
  2. ABILIFY [Suspect]
     Indication: PSYCHOTIC DISORDER
  3. SERTRALINE [Concomitant]
  4. CLOMIPRAMINE [Concomitant]
  5. OLANZAPINE [Concomitant]
  6. REBOXETINE [Concomitant]

REACTIONS (2)
  - Psychotic disorder [Recovered/Resolved]
  - Off label use [Recovered/Resolved]
